FAERS Safety Report 11759826 (Version 10)
Quarter: 2016Q4

REPORT INFORMATION
  Report Type: Spontaneous
  Country: US (occurrence: US)
  Receive Date: 20151120
  Receipt Date: 20161010
  Transmission Date: 20170206
  Serious: Yes (Hospitalization, Other)
  Sender: FDA-Public Use
  Company Number: US-PFIZER INC-2014194640

PATIENT
  Age: 76 Year
  Sex: Female
  Weight: 69.84 kg

DRUGS (22)
  1. REVATIO [Suspect]
     Active Substance: SILDENAFIL CITRATE
     Dosage: 20 MG, UNK  (9 TIMES DAILY)
  2. TYVASO [Suspect]
     Active Substance: TREPROSTINIL
     Dosage: 1.74 MG, (3 SNIFFS DAILY 12 SNIFFS EACH ONE)
  3. FUROSEMIDE. [Concomitant]
     Active Substance: FUROSEMIDE
     Dosage: 80 MG 1 1/2 DAILY
  4. TYVASO [Suspect]
     Active Substance: TREPROSTINIL
     Indication: CARDIAC DISORDER
     Dosage: 6 DF, 4X/DAY (6 SNIFFS 4 TIMES A DAY)
  5. TYVASO [Suspect]
     Active Substance: TREPROSTINIL
     Dosage: 36 UG, 4X/DAY
  6. TYVASO [Suspect]
     Active Substance: TREPROSTINIL
     Dosage: 72 UG, 4X/DAY
     Route: 055
  7. LIPITOR [Concomitant]
     Active Substance: ATORVASTATIN CALCIUM
     Indication: CARDIAC DISORDER
     Dosage: 20 MG, 1X/DAY
  8. PLAVIX [Concomitant]
     Active Substance: CLOPIDOGREL BISULFATE
     Indication: CARDIAC DISORDER
     Dosage: 75 MG, 1X/DAY
  9. COZAAR [Concomitant]
     Active Substance: LOSARTAN POTASSIUM
     Indication: CARDIAC DISORDER
     Dosage: 25 MG, 1X/DAY
  10. NORCO [Concomitant]
     Active Substance: ACETAMINOPHEN\HYDROCODONE BITARTRATE
     Indication: CARDIAC DISORDER
     Dosage: 7.5/325 MG 1 EVERY 6 HOURS [HYDROCODONE BITARTRATE: 75MG]/[PARACETAMOL-325MG]
  11. TRAZODONE [Concomitant]
     Active Substance: TRAZODONE HYDROCHLORIDE
     Indication: CARDIAC DISORDER
     Dosage: 75 MG, 1X/DAY (1 NIGHTLY)
  12. TRAZODONE [Concomitant]
     Active Substance: TRAZODONE HYDROCHLORIDE
     Dosage: 150 MG, 1X/DAY (NIGHTLY )
  13. REVATIO [Suspect]
     Active Substance: SILDENAFIL CITRATE
     Indication: CARDIAC DISORDER
     Dosage: UNK, 4X/DAY
     Dates: start: 2013
  14. TYVASO [Suspect]
     Active Substance: TREPROSTINIL
     Indication: PULMONARY ARTERIAL HYPERTENSION
     Dosage: UNK, 4X/DAY (36-72 ?G, 4 TIMES A DAY)
     Route: 055
     Dates: start: 20140731
  15. TREPROSTINIL [Concomitant]
     Active Substance: TREPROSTINIL
     Dosage: UNK UNK, 4X/DAY (DOSAGE 36-72 ?G FOUR TIMES DAILY)
     Route: 055
  16. REVATIO [Suspect]
     Active Substance: SILDENAFIL CITRATE
     Indication: PULMONARY HYPERTENSION
     Dosage: 20 MG, UNK (20 MG, 9 DAILY)
  17. NORCO [Concomitant]
     Active Substance: ACETAMINOPHEN\HYDROCODONE BITARTRATE
     Dosage: UNK, AS NEEDED
  18. REVATIO [Suspect]
     Active Substance: SILDENAFIL CITRATE
     Indication: PULMONARY ARTERIAL HYPERTENSION
     Dosage: 20 MG, 3X/DAY
     Route: 048
  19. TREPROSTINIL [Concomitant]
     Active Substance: TREPROSTINIL
     Indication: PULMONARY ARTERIAL HYPERTENSION
     Dosage: UNK, 4X/DAY (BREATHS FOUR X DAILY )
  20. FUROSEMIDE. [Concomitant]
     Active Substance: FUROSEMIDE
     Indication: CARDIAC DISORDER
     Dosage: 40 MG, DAILY
  21. PROTONIX [Concomitant]
     Active Substance: PANTOPRAZOLE SODIUM
     Indication: CARDIAC DISORDER
     Dosage: 40 MG, 1X/DAY
  22. OPSUMIT [Concomitant]
     Active Substance: MACITENTAN
     Dosage: UNK

REACTIONS (5)
  - Fall [Recovering/Resolving]
  - Syncope [Unknown]
  - Limb injury [Recovered/Resolved]
  - Ankle fracture [Recovered/Resolved]
  - Product use issue [Recovered/Resolved]

NARRATIVE: CASE EVENT DATE: 2013
